FAERS Safety Report 21558465 (Version 1)
Quarter: 2022Q4

REPORT INFORMATION
  Report Type: Spontaneous
  Country: CN (occurrence: CN)
  Receive Date: 20221107
  Receipt Date: 20221107
  Transmission Date: 20230113
  Serious: Yes (Death, Hospitalization)
  Sender: FDA-Public Use
  Company Number: CN-STRIDES ARCOLAB LIMITED-2022SP014639

PATIENT
  Age: 16 Month
  Sex: Male

DRUGS (9)
  1. DEXAMETHASONE [Suspect]
     Active Substance: DEXAMETHASONE
     Indication: Histiocytosis
     Dosage: UNK
     Route: 065
  2. VANCOMYCIN [Suspect]
     Active Substance: VANCOMYCIN
     Indication: Bacillus infection
     Dosage: UNK
     Route: 065
  3. PREDNISOLONE ACETATE [Suspect]
     Active Substance: PREDNISOLONE ACETATE
     Indication: Histiocytosis
     Dosage: UNK
     Route: 065
  4. CRIZOTINIB [Suspect]
     Active Substance: CRIZOTINIB
     Indication: Histiocytosis
     Dosage: 80 MILLIGRAM PER DAY (RECEIVED IN DIVIDED DOSES)
     Route: 048
  5. CRIZOTINIB [Suspect]
     Active Substance: CRIZOTINIB
     Dosage: 100 MILLIGRAM PER DAY
     Route: 048
  6. VINCRISTINE [Suspect]
     Active Substance: VINCRISTINE
     Indication: Histiocytosis
     Dosage: 0.55 MILLIGRAM, ONCE A WEEK
     Route: 042
  7. CYTARABINE [Suspect]
     Active Substance: CYTARABINE
     Indication: Histiocytosis
     Dosage: UNK
     Route: 065
  8. CEFTRIAXONE SODIUM [Concomitant]
     Active Substance: CEFTRIAXONE SODIUM
     Indication: Bacillus infection
     Dosage: UNK
     Route: 065
  9. MEROPENEM [Concomitant]
     Active Substance: MEROPENEM
     Indication: Bacillus infection
     Dosage: UNK
     Route: 065

REACTIONS (8)
  - Intracranial infection [Fatal]
  - Pneumonia [Fatal]
  - Cachexia [Fatal]
  - Deep vein thrombosis [Fatal]
  - Subdural effusion [Fatal]
  - Hydrocephalus [Fatal]
  - Drug ineffective [Fatal]
  - Off label use [Unknown]
